FAERS Safety Report 4602105-9 (Version None)
Quarter: 2005Q2

REPORT INFORMATION
  Report Type: 
  Country: None (occurrence: None)
  Receive Date: 20050214
  Receipt Date: 20040607
  Transmission Date: 20051028
  Serious: Yes (Hospitalization, Other)
  Sender: FDA-Public Use
  Company Number: 8006214

PATIENT
  Sex: Male

DRUGS (3)
  1. KEPPRA [Suspect]
     Indication: CONVULSION
  2. DEPAKOTE [Suspect]
     Indication: CONVULSION
  3. MYSOLINE [Suspect]

REACTIONS (1)
  - SUICIDAL IDEATION [None]
